FAERS Safety Report 26157980 (Version 1)
Quarter: 2025Q4

REPORT INFORMATION
  Report Type: Spontaneous
  Country: US (occurrence: None)
  Receive Date: 20251215
  Receipt Date: 20251215
  Transmission Date: 20260118
  Serious: Yes (Hospitalization)
  Sender: FDA-CTU
  Company Number: None

PATIENT
  Sex: Female

DRUGS (3)
  1. NUCALA [Suspect]
     Active Substance: MEPOLIZUMAB
     Indication: Chronic obstructive pulmonary disease
     Dosage: INJECT 1 PEN UNDER THE SKIN (SUBCUTANEOUS INJECTION) EVERY 4 WEEKS
     Route: 058
     Dates: start: 20251121
  2. KEPPRA SOL 100MG/ML [Concomitant]
  3. TRELEGY AER 100MCG [Concomitant]

REACTIONS (3)
  - Condition aggravated [None]
  - Chronic obstructive pulmonary disease [None]
  - Quality of life decreased [None]
